FAERS Safety Report 5578595-4 (Version None)
Quarter: 2007Q4

REPORT INFORMATION
  Report Type: 
  Country: None (occurrence: None)
  Receive Date: 20071231
  Receipt Date: 20071225
  Transmission Date: 20080405
  Serious: Yes (Other)
  Sender: FDA-Public Use
  Company Number: PHBS2007JP21511

PATIENT
  Age: 60 Year
  Sex: Female

DRUGS (1)
  1. ZOMETA [Suspect]
     Indication: MULTIPLE MYELOMA
     Dosage: 4 MG, UNK
     Route: 042
     Dates: start: 20070523, end: 20071024

REACTIONS (3)
  - IMPAIRED HEALING [None]
  - MOUTH ULCERATION [None]
  - OSTEONECROSIS [None]
